FAERS Safety Report 4525422-X (Version None)
Quarter: 2004Q4

REPORT INFORMATION
  Report Type: 
  Country: None (occurrence: None)
  Receive Date: 20041213
  Receipt Date: 20041204
  Transmission Date: 20050328
  Serious: Yes (Death)
  Sender: FDA-Public Use
  Company Number: JP-GLAXOSMITHKLINE-B0359071A

PATIENT
  Age: 58 Year
  Sex: Male

DRUGS (11)
  1. FLUTIDE DISKUS [Suspect]
     Indication: ASTHMA
     Route: 055
     Dates: start: 20040701, end: 20041011
  2. SAXIZON [Suspect]
  3. SOLU-MEDROL [Suspect]
     Route: 042
  4. PREDONINE [Suspect]
     Route: 065
  5. HOKUNALIN [Concomitant]
     Route: 062
  6. ERYTHROCIN [Concomitant]
     Route: 065
  7. GASTER D [Concomitant]
     Route: 048
  8. CLARITH [Concomitant]
     Route: 048
  9. KIPRES [Concomitant]
     Route: 048
  10. THEO-DUR [Concomitant]
     Route: 048
  11. SULTANOL [Concomitant]
     Route: 055

REACTIONS (1)
  - PNEUMONIA [None]
